FAERS Safety Report 6427055-7 (Version None)
Quarter: 2009Q4

REPORT INFORMATION
  Report Type: 
  Country: None (occurrence: None)
  Receive Date: 20091103
  Receipt Date: 20091103
  Transmission Date: 20100525
  Serious: Yes (Hospitalization)
  Sender: FDA-Public Use
  Company Number: None

PATIENT
  Sex: Female
  Weight: 54.4316 kg

DRUGS (1)
  1. ZYVOX [Suspect]
     Indication: URINARY TRACT INFECTION STAPHYLOCOCCAL
     Dosage: 1 TABLET FOUR PER DAY PO
     Route: 048
     Dates: start: 20091009, end: 20091012

REACTIONS (13)
  - ABDOMINAL PAIN [None]
  - APPETITE DISORDER [None]
  - BACK PAIN [None]
  - CHILLS [None]
  - DIARRHOEA [None]
  - FATIGUE [None]
  - FLATULENCE [None]
  - HYPERHIDROSIS [None]
  - INSOMNIA [None]
  - MENTAL DISORDER [None]
  - NAUSEA [None]
  - PSYCHOMOTOR HYPERACTIVITY [None]
  - RESTLESS LEGS SYNDROME [None]
